FAERS Safety Report 25613642 (Version 1)
Quarter: 2025Q3

REPORT INFORMATION
  Report Type: Spontaneous
  Country: US (occurrence: US)
  Receive Date: 20250728
  Receipt Date: 20250728
  Transmission Date: 20251021
  Serious: Yes (Other)
  Sender: PFIZER
  Company Number: US-PFIZER INC-202500149583

PATIENT
  Sex: Female

DRUGS (2)
  1. VELSIPITY [Suspect]
     Active Substance: ETRASIMOD ARGININE
     Indication: Colitis ulcerative
     Dates: start: 2024
  2. METOPROLOL [Suspect]
     Active Substance: METOPROLOL

REACTIONS (4)
  - Sacroiliac fusion [Unknown]
  - Incision site impaired healing [Not Recovered/Not Resolved]
  - Incision site discharge [Not Recovered/Not Resolved]
  - Immune system disorder [Unknown]

NARRATIVE: CASE EVENT DATE: 20250701
